FAERS Safety Report 8547780-1 (Version None)
Quarter: 2012Q3

REPORT INFORMATION
  Report Type: 
  Country: None (occurrence: None)
  Receive Date: 20120727
  Receipt Date: 20120501
  Transmission Date: 20120928
  Serious: Yes (Other)
  Sender: FDA-Public Use
  Company Number: US-ASTRAZENECA-2012SE01480

PATIENT
  Age: 58 Year
  Sex: Female
  Weight: 90.7 kg

DRUGS (16)
  1. SEROQUEL [Suspect]
     Route: 048
  2. SEROQUEL [Suspect]
     Route: 048
  3. SEROQUEL [Suspect]
     Route: 048
     Dates: start: 20100101
  4. SEROQUEL [Suspect]
     Route: 048
     Dates: start: 20100101
  5. SEROQUEL [Suspect]
     Route: 048
     Dates: start: 20100101
  6. SEROQUEL [Suspect]
     Indication: BIPOLAR DISORDER
     Route: 048
  7. SEROQUEL [Suspect]
     Route: 048
  8. SEROQUEL [Suspect]
     Route: 048
  9. SEROQUEL [Suspect]
     Route: 048
     Dates: start: 20100101
  10. SEROQUEL [Suspect]
     Route: 048
     Dates: start: 20100101
  11. CELEBREX [Concomitant]
     Indication: PAIN
  12. SEROQUEL [Suspect]
     Indication: BIPOLAR I DISORDER
     Route: 048
  13. SEROQUEL [Suspect]
     Route: 048
     Dates: start: 20100101
  14. SEROQUEL [Suspect]
     Route: 048
     Dates: start: 20100101
  15. SEROQUEL [Suspect]
     Route: 048
     Dates: start: 20100101
  16. NAPROXEN [Concomitant]
     Indication: PAIN

REACTIONS (9)
  - SUICIDAL IDEATION [None]
  - WEIGHT INCREASED [None]
  - DRUG DEPENDENCE [None]
  - INSOMNIA [None]
  - DEPRESSION [None]
  - ARTHRALGIA [None]
  - INTENTIONAL DRUG MISUSE [None]
  - MEMORY IMPAIRMENT [None]
  - DISCOMFORT [None]
